FAERS Safety Report 7524602-9 (Version None)
Quarter: 2011Q2

REPORT INFORMATION
  Report Type: 
  Country: None (occurrence: None)
  Receive Date: 20110606
  Receipt Date: 20110519
  Transmission Date: 20111010
  Serious: Yes (Hospitalization)
  Sender: FDA-Public Use
  Company Number: JP-BAYER-2011-028084

PATIENT
  Age: 63 Year
  Sex: Male

DRUGS (3)
  1. HERBAL PREPARATION [Concomitant]
     Indication: CONSTIPATION
     Dosage: 7.5 G, UNK
     Route: 048
     Dates: start: 20100101
  2. MAGMITT [Concomitant]
     Indication: CONSTIPATION
     Dosage: 750 MG, UNK
     Route: 048
     Dates: start: 20100101
  3. NEXAVAR [Suspect]
     Indication: HEPATIC NEOPLASM MALIGNANT
     Dosage: 400 MG, BID
     Route: 048
     Dates: start: 20110314, end: 20110327

REACTIONS (8)
  - PAIN IN EXTREMITY [None]
  - RHABDOMYOLYSIS [None]
  - PARAESTHESIA [None]
  - MUSCULAR WEAKNESS [None]
  - BLOOD PRESSURE INCREASED [None]
  - PYREXIA [None]
  - HYPOAESTHESIA [None]
  - TOXIC SKIN ERUPTION [None]
